FAERS Safety Report 7079457-6 (Version None)
Quarter: 2010Q4

REPORT INFORMATION
  Report Type: 
  Country: None (occurrence: None)
  Receive Date: 20101102
  Receipt Date: 20101026
  Transmission Date: 20110411
  Serious: Yes (Life-Threatening, Hospitalization)
  Sender: FDA-Public Use
  Company Number: FR-BRISTOL-MYERS SQUIBB COMPANY-15361819

PATIENT
  Age: 54 Year
  Sex: Male

DRUGS (13)
  1. ERBITUX [Suspect]
     Indication: RECTAL CANCER
     Dosage: SOLN FOR INJ; DRUG WITHDRAWN
     Route: 042
  2. OXALIPLATIN [Suspect]
     Indication: RECTAL CANCER
     Route: 042
  3. ELVORINE [Suspect]
     Indication: RECTAL CANCER
     Route: 042
  4. SOLU-MEDROL [Suspect]
     Indication: PREMEDICATION
     Dosage: SOLN FOR INJ
     Route: 042
  5. POLARAMINE [Suspect]
     Indication: PREMEDICATION
     Route: 042
  6. CALCIUM GLUCONATE [Suspect]
     Indication: PREMEDICATION
     Route: 042
  7. MAGNESIUM [Suspect]
     Indication: PREMEDICATION
  8. EMEND [Suspect]
     Indication: PREMEDICATION
  9. GLUCOPHAGE [Concomitant]
     Route: 048
  10. EZETIMIBE/SIMVASTATIN [Concomitant]
  11. KARDEGIC [Concomitant]
     Indication: BOUTONNEUSE FEVER
  12. TAREG [Concomitant]
  13. BISOPROLOL [Concomitant]

REACTIONS (2)
  - HYPOTENSION [None]
  - OXYGEN SATURATION DECREASED [None]
